FAERS Safety Report 9692907 (Version 1)
Quarter: 2013Q4

REPORT INFORMATION
  Report Type: Spontaneous
  Country: IT (occurrence: IT)
  Receive Date: 20131118
  Receipt Date: 20131118
  Transmission Date: 20140711
  Serious: Yes (Hospitalization)
  Sender: FDA-Public Use
  Company Number: IT-SA-2013SA115791

PATIENT
  Age: 77 Year
  Sex: Male

DRUGS (8)
  1. LANTUS [Suspect]
     Indication: DIABETES MELLITUS
     Route: 058
     Dates: start: 20130101, end: 20131004
  2. INSULIN LISPRO [Suspect]
     Indication: DIABETES MELLITUS
     Route: 058
     Dates: start: 20130101, end: 20131004
  3. COUMADIN [Concomitant]
     Route: 048
  4. TORVAST [Concomitant]
     Route: 048
  5. CONGESCOR [Concomitant]
     Route: 048
  6. ZYLORIC [Concomitant]
     Route: 048
  7. LASIX [Concomitant]
     Route: 048
  8. CORDARONE [Concomitant]
     Route: 048

REACTIONS (3)
  - Cholestasis [Unknown]
  - Hypoglycaemia [Unknown]
  - Sopor [Unknown]
